FAERS Safety Report 9691127 (Version 1)
Quarter: 2013Q4

REPORT INFORMATION
  Report Type: Spontaneous
  Country: AU (occurrence: AU)
  Receive Date: 20131115
  Receipt Date: 20131115
  Transmission Date: 20140711
  Serious: Yes (Other)
  Sender: FDA-Public Use
  Company Number: AU-BRISTOL-MYERS SQUIBB COMPANY-19792050

PATIENT
  Age: 60 Year
  Sex: Male

DRUGS (7)
  1. BYETTA [Suspect]
     Indication: TYPE 2 DIABETES MELLITUS
     Dosage: THERAPY CHANGED TO 10MCG AFTER A MONTH
     Dates: start: 2013
  2. DIABEX [Concomitant]
  3. LYRICA [Concomitant]
  4. CYMBALTA [Concomitant]
  5. NEXIUM [Concomitant]
  6. NEO-MERCAZOLE [Concomitant]
  7. DITROPAN [Concomitant]

REACTIONS (1)
  - Mania [Unknown]
